FAERS Safety Report 8822780 (Version 2)
Quarter: 2012Q4

REPORT INFORMATION
  Report Type: 
  Country: JP (occurrence: JP)
  Receive Date: 20121003
  Receipt Date: 20121105
  Transmission Date: 20130627
  Serious: Yes (Disabling)
  Sender: FDA-Public Use
  Company Number: JP-PFIZER INC-2012242712

PATIENT
  Age: 70 Year
  Sex: Male

DRUGS (5)
  1. NOVASTAN [Suspect]
     Indication: ARTERIAL OCCLUSIVE DISEASE
     Route: 051
  2. GRTPA [Concomitant]
     Indication: ARTERIAL OCCLUSIVE DISEASE
     Route: 013
  3. GRTPA [Concomitant]
     Route: 013
  4. BAYASPIRIN [Concomitant]
     Indication: ANTIPLATELET THERAPY
     Dosage: 100 mg, 1x/day
     Route: 048
  5. PLETAAL [Concomitant]
     Indication: ANTIPLATELET THERAPY
     Dosage: 100 mg, 2x/day
     Route: 048

REACTIONS (1)
  - Cerebral infarction [Recovered/Resolved with Sequelae]
